FAERS Safety Report 6418680-8 (Version None)
Quarter: 2009Q4

REPORT INFORMATION
  Report Type: 
  Country: None (occurrence: None)
  Receive Date: 20091026
  Receipt Date: 20091013
  Transmission Date: 20100525
  Serious: Yes (Other)
  Sender: FDA-Public Use
  Company Number: ADR39182009

PATIENT
  Age: 55 Year
  Sex: Male

DRUGS (2)
  1. SIMVASTATIN [Suspect]
     Indication: PROPHYLAXIS
     Dosage: 20 MG, 1/1 DAYS ORAL
     Route: 048
     Dates: start: 20080813, end: 20080817
  2. RAMIPRIL [Concomitant]

REACTIONS (2)
  - HYPERHIDROSIS [None]
  - PALPITATIONS [None]
